FAERS Safety Report 10584212 (Version 1)
Quarter: 2014Q4

REPORT INFORMATION
  Report Type: Spontaneous
  Country: US (occurrence: None)
  Receive Date: 20141113
  Receipt Date: 20141113
  Transmission Date: 20150529
  Serious: Yes (Other)
  Sender: FDA-Public Use
  Company Number: None

PATIENT
  Age: 75 Year
  Sex: Male
  Weight: 78.02 kg

DRUGS (1)
  1. METFORMIN TABLETS BP 500MG [Suspect]
     Active Substance: METFORMIN HYDROCHLORIDE
     Indication: DIABETES MELLITUS
     Dosage: 2 TABS IN THE MORNING, 2 TABS IN THE EVENING
     Route: 048

REACTIONS (3)
  - Weight decreased [None]
  - Asthenia [None]
  - Diarrhoea [None]
